FAERS Safety Report 9241146 (Version 1)
Quarter: 2013Q1

REPORT INFORMATION
  Report Type: Spontaneous
  Country: US (occurrence: None)
  Receive Date: 20121120
  Receipt Date: 20121120
  Transmission Date: 20140127
  Serious: No
  Sender: FDA-Public Use
  Company Number: 1000038220

PATIENT
  Age: 57 Year
  Sex: Male

DRUGS (6)
  1. VIIBRYD [Suspect]
     Indication: DEPRESSION
     Dosage: 10MG )10MG, 1 IN 1 D) ORAL
     Route: 048
     Dates: start: 20120810, end: 20120816
  2. NORVASC (AMLODIPINE BESILATE) [Concomitant]
  3. LISINOPRIL (LISINOPRIL) [Concomitant]
  4. LIPITOR (ATORVASTATIN CALCIUM) [Concomitant]
  5. CIMETIDINE (CIMETIDINE) [Concomitant]
  6. METOPROLOL (METOPROLOL) [Concomitant]

REACTIONS (1)
  - Amnesia [None]
